FAERS Safety Report 6648976-6 (Version None)
Quarter: 2010Q1

REPORT INFORMATION
  Report Type: 
  Country: None (occurrence: None)
  Receive Date: 20100324
  Receipt Date: 20100319
  Transmission Date: 20100710
  Serious: Yes (Other)
  Sender: FDA-Public Use
  Company Number: US-MERCK-0910USA02101

PATIENT
  Age: 67 Year
  Sex: Female
  Weight: 60 kg

DRUGS (9)
  1. FOSAMAX PLUS D [Suspect]
     Indication: OSTEOPENIA
     Route: 048
     Dates: start: 20060301, end: 20080301
  2. FOSAMAX PLUS D [Suspect]
     Indication: OSTEOPOROSIS
     Route: 048
     Dates: start: 20060301, end: 20080301
  3. CAFERGOT [Concomitant]
     Indication: MIGRAINE
     Route: 065
     Dates: start: 19600101
  4. HYDROCODONE [Concomitant]
     Indication: MIGRAINE
     Route: 065
     Dates: start: 19940101
  5. FOSAMAX [Suspect]
     Indication: OSTEOPOROSIS
     Route: 048
     Dates: start: 20030717, end: 20060301
  6. FOSAMAX [Suspect]
     Indication: OSTEOPENIA
     Route: 048
     Dates: start: 20030717, end: 20060301
  7. ESTROGENS (UNSPECIFIED) [Concomitant]
     Indication: OESTROGEN DEFICIENCY
     Route: 065
     Dates: end: 20040101
  8. CALCIUM (UNSPECIFIED) [Concomitant]
     Route: 065
  9. VITAMIN D (UNSPECIFIED) [Concomitant]
     Route: 065

REACTIONS (19)
  - ALOPECIA [None]
  - ANAEMIA [None]
  - ARTHRITIS [None]
  - ARTHROPATHY [None]
  - BONE DENSITY DECREASED [None]
  - DENTAL CARIES [None]
  - DENTAL FISTULA [None]
  - DENTAL NECROSIS [None]
  - GASTROINTESTINAL DISORDER [None]
  - IMPAIRED HEALING [None]
  - MIGRAINE [None]
  - MUCOSAL ATROPHY [None]
  - ORAL INFECTION [None]
  - OSTEONECROSIS [None]
  - POLYP [None]
  - PULPITIS DENTAL [None]
  - SENSITIVITY OF TEETH [None]
  - TOOTHACHE [None]
  - VAGINAL STRICTURE [None]
